FAERS Safety Report 6166236-7 (Version None)
Quarter: 2009Q2

REPORT INFORMATION
  Report Type: 
  Country: None (occurrence: None)
  Receive Date: 20090424
  Receipt Date: 20090416
  Transmission Date: 20091009
  Serious: Yes (Other)
  Sender: FDA-Public Use
  Company Number: PHHY2009PL14206

PATIENT
  Age: 32 Year
  Sex: Male

DRUGS (9)
  1. SIMULECT [Suspect]
     Indication: TRANSPLANT
     Dosage: 1 DF, ONCE/SINGLE
  2. SIMULECT [Suspect]
     Dosage: 1 DF, ONCE/SINGLE
  3. PROGRAF [Suspect]
     Indication: IMMUNOSUPPRESSION
     Dosage: 5 MG, BID
  4. CELLCEPT [Suspect]
     Indication: IMMUNOSUPPRESSION
     Dosage: 1 G, BID
  5. SOLU-MEDROL [Suspect]
     Indication: IMMUNOSUPPRESSION
     Dosage: 500 MG DAILY
  6. ENCORTON [Suspect]
     Indication: IMMUNOSUPPRESSION
     Dosage: 5 MG DAILY
  7. HEPARIN [Concomitant]
     Dosage: 5000 IU PER 2 DAYS
  8. ENOXAPARIN SODIUM [Concomitant]
     Dosage: 0.3 G, BID
  9. ACARBOSE [Concomitant]
     Dosage: 50 MG/DAY
     Route: 048

REACTIONS (5)
  - CANDIDIASIS [None]
  - IMPAIRED HEALING [None]
  - POST PROCEDURAL HAEMATOMA [None]
  - SKIN GRAFT [None]
  - WOUND COMPLICATION [None]
